FAERS Safety Report 6666735-5 (Version None)
Quarter: 2010Q1

REPORT INFORMATION
  Report Type: 
  Country: None (occurrence: None)
  Receive Date: 20100331
  Receipt Date: 20100322
  Transmission Date: 20100710
  Serious: Yes (Disabling)
  Sender: FDA-Public Use
  Company Number: DSA_42848_2010

PATIENT
  Age: 54 Year
  Sex: Male

DRUGS (1)
  1. ELONTRIL - BUPROPION HYDROCHLORIDE EXTENDED RELEASE 150 MG [Suspect]
     Indication: DEPRESSION
     Dosage: 150 MG, FREQUENCY UNKNOWN, ORAL
     Route: 048
     Dates: start: 20090708, end: 20090802

REACTIONS (1)
  - ERECTILE DYSFUNCTION [None]
